FAERS Safety Report 6758310-9 (Version None)
Quarter: 2010Q2

REPORT INFORMATION
  Report Type: 
  Country: None (occurrence: None)
  Receive Date: 20100607
  Receipt Date: 20100601
  Transmission Date: 20101027
  Serious: Yes (Hospitalization)
  Sender: FDA-Public Use
  Company Number: US-ASTRAZENECA-2010SE23649

PATIENT
  Age: 74 Year
  Sex: Female
  Weight: 55.8 kg

DRUGS (2)
  1. SYMBICORT [Suspect]
     Indication: DYSPNOEA
     Dosage: 320 MCG BID
     Route: 055
     Dates: start: 20080101
  2. COMBIVENT [Concomitant]
     Indication: DYSPNOEA
     Dosage: 3 PUFFS
     Route: 055

REACTIONS (3)
  - DRUG INEFFECTIVE [None]
  - DYSPNOEA [None]
  - HEART RATE ABNORMAL [None]
